FAERS Safety Report 8541563-4 (Version None)
Quarter: 2012Q3

REPORT INFORMATION
  Report Type: 
  Country: None (occurrence: None)
  Receive Date: 20120726
  Receipt Date: 20120614
  Transmission Date: 20120928
  Serious: No
  Sender: FDA-Public Use
  Company Number: US-MUTUAL PHARMACEUTICAL COMPANY, INC.-CLCY20120094

PATIENT
  Age: 47 Year
  Sex: Female

DRUGS (2)
  1. AMOXICILLIN [Suspect]
     Indication: PRODUCT USED FOR UNKNOWN INDICATION
     Route: 065
     Dates: start: 20120608
  2. COLCRYS [Suspect]
     Indication: LEUKOCYTOCLASTIC VASCULITIS
     Route: 065
     Dates: start: 20120601

REACTIONS (3)
  - RASH [None]
  - DRUG INTERACTION [None]
  - OFF LABEL USE [None]
